FAERS Safety Report 5212962-3 (Version None)
Quarter: 2007Q1

REPORT INFORMATION
  Report Type: 
  Country: None (occurrence: None)
  Receive Date: 20070117
  Receipt Date: 20070117
  Transmission Date: 20070707
  Serious: No
  Sender: FDA-Public Use
  Company Number: None

PATIENT
  Sex: Female
  Weight: 72.5755 kg

DRUGS (11)
  1. ORENCIA [Suspect]
     Indication: RHEUMATOID ARTHRITIS
     Dosage: 750MG MONTHLY IV
     Route: 042
  2. PREDNISONE TAB [Concomitant]
  3. LISINOPRIL [Concomitant]
  4. COUMADIN [Concomitant]
  5. DIGOXIN [Concomitant]
  6. TYLENOL [Concomitant]
  7. LASIX [Concomitant]
  8. CALCIUM CARBONATE [Concomitant]
  9. BONIVA [Concomitant]
  10. ULTRACET [Concomitant]
  11. DOCUSATE [Concomitant]

REACTIONS (1)
  - PSORIASIS [None]
